FAERS Safety Report 17731167 (Version 1)
Quarter: 2020Q2

REPORT INFORMATION
  Report Type: Spontaneous
  Country: US (occurrence: US)
  Receive Date: 20200430
  Receipt Date: 20200430
  Transmission Date: 20200714
  Serious: No
  Sender: FDA-Public Use
  Company Number: US-BLUEPRINT MEDICINES CORPORATION-SP-US-2020-000142

PATIENT
  Age: 75 Year
  Sex: Female

DRUGS (2)
  1. AYVAKIT [Suspect]
     Active Substance: AVAPRITINIB
     Indication: GASTROINTESTINAL STROMAL TUMOUR
     Route: 048
     Dates: start: 201908, end: 201910
  2. AYVAKIT [Suspect]
     Active Substance: AVAPRITINIB
     Dosage: RESUMED TAKING THE DRUG AT A LOWER DOSE AFTER 2 WEEKS OF BEING OFF OF THE DRUG
     Route: 048

REACTIONS (1)
  - Hyponatraemia [Recovered/Resolved]
